FAERS Safety Report 12342855 (Version 1)
Quarter: 2016Q2

REPORT INFORMATION
  Report Type: Spontaneous
  Country: US (occurrence: US)
  Receive Date: 20160506
  Receipt Date: 20160506
  Transmission Date: 20160815
  Serious: Yes (Death, Other)
  Sender: FDA-Public Use
  Company Number: US-TAKEDA-TPA2012A02215

PATIENT

DRUGS (5)
  1. METFORMIN [Concomitant]
     Active Substance: METFORMIN HYDROCHLORIDE
     Dates: start: 201201
  2. HUMALOG [Concomitant]
     Active Substance: INSULIN LISPRO
     Dates: start: 2010
  3. ACTOS [Suspect]
     Active Substance: PIOGLITAZONE HYDROCHLORIDE
     Indication: TYPE 2 DIABETES MELLITUS
     Dosage: UNK
     Route: 048
     Dates: start: 2005, end: 2010
  4. GLUCOTROL [Concomitant]
     Active Substance: GLIPIZIDE
     Dates: start: 2007
  5. LEVEMIR [Concomitant]
     Active Substance: INSULIN DETEMIR
     Dates: start: 2005

REACTIONS (2)
  - Death [Fatal]
  - Bladder cancer [Unknown]

NARRATIVE: CASE EVENT DATE: 201109
